FAERS Safety Report 15298531 (Version 1)
Quarter: 2018Q3

REPORT INFORMATION
  Report Type: Spontaneous
  Country: FR (occurrence: FR)
  Receive Date: 20180820
  Receipt Date: 20180820
  Transmission Date: 20181010
  Serious: Yes (Death)
  Sender: FDA-Public Use
  Company Number: FR-NAPPMUNDI-GBR-2012-0010855

PATIENT
  Age: 80 Year
  Sex: Female

DRUGS (12)
  1. HYPNOVEL                           /00634103/ [Concomitant]
     Active Substance: MIDAZOLAM HYDROCHLORIDE
     Dosage: 10 MG, UNK
  2. INEXIUM                            /01479302/ [Concomitant]
     Active Substance: ESOMEPRAZOLE MAGNESIUM
     Dosage: 40 MG, UNK
  3. LOSARTAN ACTAVIS [Concomitant]
     Active Substance: LOSARTAN
     Dosage: 50 MG, UNK
  4. MEDROL [Concomitant]
     Active Substance: METHYLPREDNISOLONE
     Dosage: 16 MG, UNK
  5. OXYNORMORO COMPRIME ORODISPERSIBLE 10MG [Suspect]
     Active Substance: OXYCODONE HYDROCHLORIDE
     Indication: PRODUCT USED FOR UNKNOWN INDICATION
     Dosage: 10 MG, 6 TIMES DAILY
     Route: 048
     Dates: start: 20120510
  6. DOMPERIDONE [Concomitant]
     Active Substance: DOMPERIDONE
     Dosage: 10 MG, UNK
  7. SPASFON LYOC [Concomitant]
     Active Substance: PHLOROGLUCINOL
  8. ALPRAZOLAM. [Interacting]
     Active Substance: ALPRAZOLAM
     Indication: PRODUCT USED FOR UNKNOWN INDICATION
     Dosage: 0.25 MG, TID
     Route: 065
     Dates: end: 20120510
  9. KARDEGIC [Concomitant]
     Active Substance: ASPIRIN DL-LYSINE
     Dosage: 75 MG, DAILY
     Route: 048
     Dates: end: 20120510
  10. TARCEVA [Interacting]
     Active Substance: ERLOTINIB HYDROCHLORIDE
     Indication: PRODUCT USED FOR UNKNOWN INDICATION
     Dosage: 100 MG, DAILY
     Route: 048
     Dates: start: 20120329, end: 20120508
  11. DUROGESIC [Suspect]
     Active Substance: FENTANYL
     Indication: PRODUCT USED FOR UNKNOWN INDICATION
     Dosage: 50 UG/ML, UNK
     Route: 062
     Dates: end: 20120510
  12. ARIXTRA [Concomitant]
     Active Substance: FONDAPARINUX SODIUM
     Dosage: 2.5MG/0.5 ML
     Route: 042
     Dates: end: 20120310

REACTIONS (3)
  - Drug interaction [Fatal]
  - Dyspnoea [Fatal]
  - Interstitial lung disease [Fatal]

NARRATIVE: CASE EVENT DATE: 20120504
